FAERS Safety Report 8118968-9 (Version None)
Quarter: 2012Q1

REPORT INFORMATION
  Report Type: 
  Country: None (occurrence: None)
  Receive Date: 20120207
  Receipt Date: 20120202
  Transmission Date: 20120608
  Serious: Yes (Disabling, Other)
  Sender: FDA-Public Use
  Company Number: US-SANOFI-AVENTIS-2012SA007137

PATIENT
  Sex: Male

DRUGS (2)
  1. PLAVIX [Suspect]
     Indication: HEART VALVE OPERATION
     Route: 048
     Dates: end: 20120108
  2. PLAVIX [Suspect]
     Route: 048
     Dates: end: 20120108

REACTIONS (3)
  - CORONARY ARTERY OCCLUSION [None]
  - CARDIAC VALVE DISEASE [None]
  - HEARING DISABILITY [None]
